FAERS Safety Report 5879563-5 (Version None)
Quarter: 2008Q3

REPORT INFORMATION
  Report Type: 
  Country: None (occurrence: None)
  Receive Date: 20080912
  Receipt Date: 20080903
  Transmission Date: 20090109
  Serious: Yes (Disabling, Other)
  Sender: FDA-Public Use
  Company Number: US-JNJFOC-20080400083

PATIENT
  Age: 69 Year
  Sex: Female
  Weight: 155 kg

DRUGS (5)
  1. DORIPENEM [Suspect]
     Indication: COMPARTMENT SYNDROME
     Route: 041
  2. DORIPENEM [Suspect]
     Indication: FASCIOTOMY
     Route: 041
  3. CEFEPIME [Concomitant]
  4. VANCOMYCIN HYDROCHLORIDE [Concomitant]
  5. ZOSYN [Concomitant]

REACTIONS (1)
  - CONVULSION [None]
